FAERS Safety Report 7967809-9 (Version None)
Quarter: 2011Q4

REPORT INFORMATION
  Report Type: 
  Country: None (occurrence: None)
  Receive Date: 20111209
  Receipt Date: 20111206
  Transmission Date: 20120403
  Serious: No
  Sender: FDA-Public Use
  Company Number: US-PFIZER INC-2011299634

PATIENT
  Sex: Female
  Weight: 49.9 kg

DRUGS (2)
  1. CODEINE PHOSPHATE AND PSEUDOEPHEDRINE HYDROCHLORIDE [Suspect]
  2. PENICILLIN G PROCAINE [Suspect]
     Dosage: UNK

REACTIONS (1)
  - DRUG HYPERSENSITIVITY [None]
